FAERS Safety Report 4590679-6 (Version None)
Quarter: 2005Q1

REPORT INFORMATION
  Report Type: 
  Country: None (occurrence: None)
  Receive Date: 20050224
  Receipt Date: 20050216
  Transmission Date: 20050727
  Serious: Yes (Other)
  Sender: FDA-Public Use
  Company Number: IE-ABBOTT-05P-229-0291239-00

PATIENT
  Sex: Female

DRUGS (5)
  1. KLACID FORTE TABLETS [Suspect]
     Indication: WHEEZING
     Route: 048
     Dates: start: 20040405
  2. KLACID FORTE TABLETS [Suspect]
     Indication: RESPIRATORY TRACT INFECTION
  3. ALBUTEROL [Concomitant]
     Indication: DRUG USE FOR UNKNOWN INDICATION
  4. DIHYDROCODEINE BITARTRATE [Concomitant]
     Indication: DRUG USE FOR UNKNOWN INDICATION
  5. AMITRIPTYLINE [Concomitant]
     Indication: DRUG USE FOR UNKNOWN INDICATION

REACTIONS (1)
  - ANOSMIA [None]
